FAERS Safety Report 18871640 (Version 1)
Quarter: 2021Q1

REPORT INFORMATION
  Report Type: Spontaneous
  Country: CN (occurrence: CN)
  Receive Date: 20210210
  Receipt Date: 20210210
  Transmission Date: 20210420
  Serious: Yes (Other)
  Sender: FDA-Public Use
  Company Number: CN-009507513-2102CHN003278

PATIENT
  Age: 41 Year
  Sex: Female

DRUGS (1)
  1. TIENAM [Suspect]
     Active Substance: CILASTATIN SODIUM\IMIPENEM
     Indication: COINFECTION
     Dosage: 0.5 G, TWO TIMES A DAY (BID)
     Route: 041
     Dates: start: 20210127, end: 20210202

REACTIONS (5)
  - Chronic kidney disease [Unknown]
  - Loss of consciousness [Recovering/Resolving]
  - Urinary incontinence [Recovering/Resolving]
  - Muscle twitching [Recovering/Resolving]
  - Coinfection [Unknown]

NARRATIVE: CASE EVENT DATE: 202102
